FAERS Safety Report 13047416 (Version 1)
Quarter: 2016Q4

REPORT INFORMATION
  Report Type: Spontaneous
  Country: IT (occurrence: IT)
  Receive Date: 20161220
  Receipt Date: 20161220
  Transmission Date: 20170207
  Serious: Yes (Other)
  Sender: FDA-Public Use
  Company Number: IT-TEVA-720922ACC

PATIENT
  Age: 37 Year
  Sex: Male

DRUGS (2)
  1. ETOPOSIDE TEVA - 20 MG/ML CONCENTRATO PER SOLUZIONE PER INFUSIONE - TE [Suspect]
     Active Substance: ETOPOSIDE
     Indication: PRODUCT USED FOR UNKNOWN INDICATION
     Dosage: 200 MG TOTAL
     Route: 042
     Dates: start: 20161129, end: 20161130
  2. CISPLATINO ACCORD HEALTHCARE ITALIA [Concomitant]
     Active Substance: CISPLATIN
     Indication: PRODUCT USED FOR UNKNOWN INDICATION

REACTIONS (4)
  - Hyperaemia [Recovered/Resolved]
  - Hypertension [Unknown]
  - Visual impairment [Recovered/Resolved]
  - Tachypnoea [Recovered/Resolved]

NARRATIVE: CASE EVENT DATE: 20161129
